FAERS Safety Report 8422931-8 (Version None)
Quarter: 2012Q2

REPORT INFORMATION
  Report Type: 
  Country: None (occurrence: None)
  Receive Date: 20120608
  Receipt Date: 20120529
  Transmission Date: 20120825
  Serious: Yes (Death)
  Sender: FDA-Public Use
  Company Number: JP-GLAXOSMITHKLINE-B0779387A

PATIENT
  Age: 22 Year
  Sex: Female

DRUGS (15)
  1. DESYREL [Concomitant]
     Dosage: 250MG PER DAY
     Route: 048
     Dates: end: 20110131
  2. LUVOX [Concomitant]
     Dosage: 75MG PER DAY
     Route: 048
     Dates: start: 20101228, end: 20110110
  3. LUVOX [Concomitant]
     Dosage: 25MG PER DAY
     Route: 048
     Dates: start: 20110118, end: 20110124
  4. PAXIL [Suspect]
     Indication: SOCIAL PHOBIA
     Dosage: 10MG PER DAY
     Route: 048
     Dates: start: 20101228, end: 20110110
  5. PAXIL [Suspect]
     Dosage: 20MG PER DAY
     Route: 048
     Dates: start: 20110111, end: 20110131
  6. LUVOX [Concomitant]
     Indication: SOCIAL PHOBIA
     Dosage: 100MG PER DAY
     Route: 048
     Dates: start: 20101206, end: 20101227
  7. DESYREL [Concomitant]
     Dosage: 50MG PER DAY
     Route: 048
     Dates: start: 20110201
  8. MEILAX [Concomitant]
     Dosage: 1MG PER DAY
     Route: 048
     Dates: start: 20110208
  9. PAXIL [Suspect]
     Dosage: 25MG PER DAY
     Route: 048
     Dates: start: 20110526, end: 20111224
  10. DEPAKENE [Concomitant]
     Dosage: 200MG PER DAY
     Route: 048
     Dates: start: 20110201, end: 20110207
  11. PAXIL [Suspect]
     Dosage: 30MG PER DAY
     Route: 048
     Dates: start: 20110201, end: 20110525
  12. LUVOX [Concomitant]
     Dosage: 50MG PER DAY
     Route: 048
     Dates: start: 20110111, end: 20110117
  13. DEPAKENE [Concomitant]
     Dosage: 300MG PER DAY
     Route: 048
     Dates: end: 20110131
  14. DOGMATYL [Suspect]
     Dosage: 100MG PER DAY
     Route: 048
     Dates: end: 20110404
  15. SILECE [Concomitant]
     Dosage: 1MG PER DAY
     Route: 048
     Dates: end: 20110207

REACTIONS (1)
  - COMPLETED SUICIDE [None]
